FAERS Safety Report 8305616-8 (Version None)
Quarter: 2012Q2

REPORT INFORMATION
  Report Type: 
  Country: None (occurrence: None)
  Receive Date: 20120423
  Receipt Date: 20120416
  Transmission Date: 20120825
  Serious: Yes (Hospitalization)
  Sender: FDA-Public Use
  Company Number: 2012SP000566

PATIENT
  Age: 30 Year
  Sex: Male

DRUGS (13)
  1. VIIBRYD [Concomitant]
     Indication: PRODUCT USED FOR UNKNOWN INDICATION
  2. LITHIUM CARBONATE [Concomitant]
     Indication: PRODUCT USED FOR UNKNOWN INDICATION
     Route: 048
  3. LATUDA [Suspect]
     Indication: SCHIZOAFFECTIVE DISORDER
     Route: 048
     Dates: start: 20110825, end: 20111028
  4. ISONIAZID [Concomitant]
     Indication: TUBERCULOSIS
  5. DEPAKOTE [Concomitant]
     Indication: PRODUCT USED FOR UNKNOWN INDICATION
  6. LATUDA [Suspect]
     Route: 048
     Dates: start: 20120119, end: 20120201
  7. SEROQUEL [Concomitant]
     Indication: PRODUCT USED FOR UNKNOWN INDICATION
  8. ABILIFY [Concomitant]
     Indication: PRODUCT USED FOR UNKNOWN INDICATION
  9. LATUDA [Suspect]
     Route: 048
     Dates: start: 20120111, end: 20120118
  10. LATUDA [Suspect]
     Route: 048
     Dates: start: 20120201, end: 20120214
  11. LATUDA [Suspect]
     Route: 048
     Dates: start: 20120214, end: 20120301
  12. WELLBUTRIN [Concomitant]
     Indication: PRODUCT USED FOR UNKNOWN INDICATION
     Dates: end: 20110919
  13. COGENTIN [Concomitant]
     Indication: PRODUCT USED FOR UNKNOWN INDICATION

REACTIONS (7)
  - RASH [None]
  - HYPERSOMNIA [None]
  - MUSCULOSKELETAL STIFFNESS [None]
  - TREMOR [None]
  - DYSPNOEA [None]
  - TREATMENT NONCOMPLIANCE [None]
  - INSOMNIA [None]
